FAERS Safety Report 11096168 (Version 2)
Quarter: 2015Q2

REPORT INFORMATION
  Report Type: Spontaneous
  Country: US (occurrence: None)
  Receive Date: 20150505
  Receipt Date: 20150610
  Transmission Date: 20150821
  Serious: Yes (Hospitalization, Other)
  Sender: FDA-Public Use
  Company Number: DEP_02700_2015

PATIENT
  Sex: Female
  Weight: 77.11 kg

DRUGS (15)
  1. NUCYNTA [Suspect]
     Active Substance: TAPENTADOL HYDROCHLORIDE
     Indication: BACK PAIN
     Dosage: STARTED OVER 3 YEARS PRIOR TO THIS REPORT
     Route: 048
     Dates: end: 2015
  2. INDAPAMIDE. [Concomitant]
     Active Substance: INDAPAMIDE
  3. NUCYNTA [Suspect]
     Active Substance: TAPENTADOL HYDROCHLORIDE
     Indication: RHEUMATOID ARTHRITIS
     Route: 048
     Dates: end: 2015
  4. NUCYNTA [Suspect]
     Active Substance: TAPENTADOL HYDROCHLORIDE
     Indication: ARTHRALGIA
     Dosage: STARTED OVER 3 YEARS PRIOR TO THIS REPORT
     Route: 048
     Dates: end: 2015
  5. GABAPENTIN. [Concomitant]
     Active Substance: GABAPENTIN
  6. LOVAZA [Concomitant]
     Active Substance: OMEGA-3-ACID ETHYL ESTERS
  7. NUCYNTA [Suspect]
     Active Substance: TAPENTADOL HYDROCHLORIDE
     Indication: BACK PAIN
     Route: 048
     Dates: end: 2015
  8. LISINOPRIL. [Concomitant]
     Active Substance: LISINOPRIL
  9. LIPOFEN [Concomitant]
     Active Substance: FENOFIBRATE
  10. ESOMEPRAZOLE [Concomitant]
     Active Substance: ESOMEPRAZOLE
  11. LEVOTHYROXINE [Concomitant]
     Active Substance: LEVOTHYROXINE
  12. NUCYNTA [Suspect]
     Active Substance: TAPENTADOL HYDROCHLORIDE
     Indication: RHEUMATOID ARTHRITIS
     Dosage: STARTED OVER 3 YEARS PRIOR TO THIS REPORT
     Route: 048
     Dates: end: 2015
  13. NUCYNTA [Suspect]
     Active Substance: TAPENTADOL HYDROCHLORIDE
     Indication: WOUND COMPLICATION
     Route: 048
     Dates: end: 2015
  14. FLUOXETINE [Concomitant]
     Active Substance: FLUOXETINE\FLUOXETINE HYDROCHLORIDE
  15. FACET INJECTIONS [Concomitant]

REACTIONS (11)
  - Abdominal mass [None]
  - Drug ineffective [None]
  - Somnolence [None]
  - Hernia [None]
  - Fall [None]
  - Sensory disturbance [None]
  - Staphylococcal bacteraemia [None]
  - Staphylococcal infection [None]
  - Swelling [None]
  - Product quality issue [None]
  - Insomnia [None]
